FAERS Safety Report 19882427 (Version 1)
Quarter: 2021Q3

REPORT INFORMATION
  Report Type: Report from Study
  Country: US (occurrence: US)
  Receive Date: 20210925
  Receipt Date: 20210925
  Transmission Date: 20211014
  Serious: No
  Sender: FDA-Public Use
  Company Number: NVSC2021US217139

PATIENT
  Age: 14 Year
  Sex: Female

DRUGS (1)
  1. ILARIS [Suspect]
     Active Substance: CANAKINUMAB
     Indication: PYREXIA
     Dosage: 90 MG, EVERY 8 WEEKS
     Route: 058
     Dates: start: 20210730

REACTIONS (1)
  - Inappropriate schedule of product administration [Unknown]

NARRATIVE: CASE EVENT DATE: 20210921
